FAERS Safety Report 4920633-3 (Version None)
Quarter: 2006Q1

REPORT INFORMATION
  Report Type: 
  Country: None (occurrence: None)
  Receive Date: 20060223
  Receipt Date: 20060215
  Transmission Date: 20060701
  Serious: Yes (Hospitalization)
  Sender: FDA-Public Use
  Company Number: FR-ROCHE-436597

PATIENT
  Age: 88 Year
  Sex: Female

DRUGS (5)
  1. CLONAZEPAM [Suspect]
     Route: 048
     Dates: end: 20060114
  2. LAMALINE SUPPOSITORIES [Concomitant]
     Route: 054
  3. AERIUS [Concomitant]
     Route: 048
  4. TRIMETAZIDINE [Concomitant]
     Route: 048
  5. NAPROXEN [Concomitant]
     Dosage: TREATED ALTERNATELY 15 DAYS.
     Route: 065
     Dates: start: 20050515

REACTIONS (16)
  - BLOOD CREATINE PHOSPHOKINASE INCREASED [None]
  - BRADYCARDIA [None]
  - BRADYPNOEA [None]
  - CEREBRAL ATROPHY [None]
  - CONFUSIONAL STATE [None]
  - DISORIENTATION [None]
  - DRUG LEVEL ABOVE THERAPEUTIC [None]
  - ELECTROCARDIOGRAM QT PROLONGED [None]
  - FALL [None]
  - HALLUCINATION, VISUAL [None]
  - HYPOMETABOLISM [None]
  - HYPOTHERMIA [None]
  - MIOSIS [None]
  - OVERDOSE [None]
  - RASH [None]
  - RHABDOMYOLYSIS [None]
